FAERS Safety Report 12726209 (Version 2)
Quarter: 2017Q2

REPORT INFORMATION
  Report Type: Spontaneous
  Country: US (occurrence: US)
  Receive Date: 20160908
  Receipt Date: 20170418
  Transmission Date: 20170830
  Serious: Yes (Disabling)
  Sender: FDA-Public Use
  Company Number: US-BAUSCH-BL-2016-021142

PATIENT
  Age: 69 Year
  Sex: Female

DRUGS (3)
  1. XENAZINE [Suspect]
     Active Substance: TETRABENAZINE
     Indication: HUNTINGTON^S DISEASE
     Route: 048
  2. XENAZINE [Suspect]
     Active Substance: TETRABENAZINE
     Dosage: 25MG IN THE MORNING AND 50MG AT NIGHT.
     Route: 048
     Dates: start: 20160828
  3. XENAZINE [Suspect]
     Active Substance: TETRABENAZINE
     Route: 048
     Dates: start: 20160826, end: 20160828

REACTIONS (6)
  - Hypersomnia [Unknown]
  - Fall [Unknown]
  - Treatment noncompliance [Unknown]
  - Hypokinesia [Unknown]
  - Gait disturbance [Unknown]
  - Prescribed overdose [Unknown]

NARRATIVE: CASE EVENT DATE: 20160820
